FAERS Safety Report 7432778-7 (Version None)
Quarter: 2011Q2

REPORT INFORMATION
  Report Type: 
  Country: None (occurrence: None)
  Receive Date: 20110422
  Receipt Date: 20110411
  Transmission Date: 20111010
  Serious: Yes (Hospitalization)
  Sender: FDA-Public Use
  Company Number: B0712774A

PATIENT
  Sex: Male
  Weight: 85.6 kg

DRUGS (5)
  1. HOLOXAN [Suspect]
     Indication: NEOPLASM MALIGNANT
     Route: 065
     Dates: start: 20110405
  2. TEMAZEPAM [Concomitant]
     Route: 048
     Dates: start: 20110328
  3. PAZOPANIB [Suspect]
     Indication: NEOPLASM MALIGNANT
     Route: 048
     Dates: start: 20110329
  4. MOVICOLON [Concomitant]
     Route: 048
     Dates: start: 20110408
  5. METOCLOPRAMIDE [Concomitant]
     Route: 048
     Dates: start: 20110408

REACTIONS (2)
  - BLOOD CREATININE INCREASED [None]
  - FEBRILE NEUTROPENIA [None]
